FAERS Safety Report 8051189-7 (Version None)
Quarter: 2012Q1

REPORT INFORMATION
  Report Type: 
  Country: None (occurrence: None)
  Receive Date: 20120117
  Receipt Date: 20120113
  Transmission Date: 20120608
  Serious: Yes (Other)
  Sender: FDA-Public Use
  Company Number: PHHY2011NO107430

PATIENT
  Sex: Female

DRUGS (1)
  1. EXJADE [Suspect]
     Indication: BLOOD IRON INCREASED

REACTIONS (5)
  - RASH PRURITIC [None]
  - SWELLING [None]
  - EYE PRURITUS [None]
  - URTICARIA [None]
  - GENERALISED ERYTHEMA [None]
